FAERS Safety Report 11659344 (Version 1)
Quarter: 2015Q4

REPORT INFORMATION
  Report Type: Spontaneous
  Country: SG (occurrence: SG)
  Receive Date: 20151026
  Receipt Date: 20151026
  Transmission Date: 20160304
  Serious: Yes (Hospitalization)
  Sender: FDA-Public Use
  Company Number: SG-ACCORD-034783

PATIENT
  Age: 68 Year
  Sex: Male

DRUGS (3)
  1. PREDNISOLONE. [Suspect]
     Active Substance: PREDNISOLONE
     Indication: CARDIAC SARCOIDOSIS
  2. TACROLIMUS. [Suspect]
     Active Substance: TACROLIMUS
     Indication: CARDIAC SARCOIDOSIS
  3. MYCOPHENOLIC ACID. [Suspect]
     Active Substance: MYCOPHENOLIC ACID
     Indication: CARDIAC SARCOIDOSIS

REACTIONS (3)
  - Pulmonary tuberculosis [Recovering/Resolving]
  - Intestinal tuberculosis [Recovering/Resolving]
  - Intestinal perforation [Recovered/Resolved]
